FAERS Safety Report 18277649 (Version 2)
Quarter: 2020Q3

REPORT INFORMATION
  Report Type: Spontaneous
  Country: FR (occurrence: FR)
  Receive Date: 20200917
  Receipt Date: 20200925
  Transmission Date: 20201103
  Serious: Yes (Death)
  Sender: FDA-Public Use
  Company Number: FR-JNJFOC-20200906815

PATIENT
  Age: 48 Year
  Sex: Male
  Weight: 70 kg

DRUGS (4)
  1. TEMESTA                            /00273201/ [Concomitant]
     Active Substance: LORAZEPAM
  2. MIRTAZAPINE. [Concomitant]
     Active Substance: MIRTAZAPINE
     Indication: DEPRESSION
     Dosage: 2 TABLETS AND A HALF
     Route: 048
     Dates: start: 202005, end: 202005
  3. SPRAVATO [Suspect]
     Active Substance: ESKETAMINE
     Indication: DEPRESSION
     Dates: start: 20200525, end: 20200529
  4. LITHIUM. [Concomitant]
     Active Substance: LITHIUM

REACTIONS (1)
  - Completed suicide [Fatal]

NARRATIVE: CASE EVENT DATE: 20200531
